FAERS Safety Report 9060200 (Version 1)
Quarter: 2013Q1

REPORT INFORMATION
  Report Type: Spontaneous
  Country: US (occurrence: None)
  Receive Date: 20130118
  Receipt Date: 20130118
  Transmission Date: 20140127
  Serious: Yes (Death)
  Sender: FDA-Public Use
  Company Number: AUR-APL-2013-00428

PATIENT
  Age: 41 Year
  Sex: Female

DRUGS (5)
  1. CITALOPRAM (CITALOPRAM) [Suspect]
     Dosage: UNKNOWN
  2. VERAPAMIL [Suspect]
     Dosage: ORAL
     Route: 048
  3. CLONIDINE [Suspect]
     Dosage: UNKNOWN
  4. ACETAMINOPHEN\BUTALBITAL\CAFFEINE [Suspect]
     Dosage: UNKNOWN
  5. ETHANOL [Suspect]
     Dosage: UNKNOWN

REACTIONS (1)
  - Completed suicide [None]
